FAERS Safety Report 16713359 (Version 1)
Quarter: 2019Q3

REPORT INFORMATION
  Report Type: Spontaneous
  Country: US (occurrence: US)
  Receive Date: 20190818
  Receipt Date: 20190818
  Transmission Date: 20191004
  Serious: No
  Sender: FDA-Public Use
  Company Number: US-ALEXION PHARMACEUTICALS INC.-A201911884

PATIENT
  Sex: Male

DRUGS (2)
  1. SOLIRIS [Suspect]
     Active Substance: ECULIZUMAB
     Indication: OFF LABEL USE
  2. SOLIRIS [Suspect]
     Active Substance: ECULIZUMAB
     Indication: THROMBOTIC MICROANGIOPATHY
     Dosage: UNK UNK, QW
     Route: 065

REACTIONS (9)
  - Adverse event [Unknown]
  - Stomatitis [Unknown]
  - Epstein-Barr virus infection [Recovering/Resolving]
  - BK virus infection [Unknown]
  - Off label use [Unknown]
  - Contusion [Unknown]
  - Lymphocyte count decreased [Recovering/Resolving]
  - Renal disorder [Not Recovered/Not Resolved]
  - Platelet count decreased [Unknown]
